FAERS Safety Report 14018734 (Version 3)
Quarter: 2018Q1

REPORT INFORMATION
  Report Type: Spontaneous
  Country: US (occurrence: US)
  Receive Date: 20170928
  Receipt Date: 20180129
  Transmission Date: 20180508
  Serious: No
  Sender: FDA-Public Use
  Company Number: US-PFIZER INC-2017415553

PATIENT
  Age: 82 Year
  Sex: Female

DRUGS (1)
  1. ADVIL [Suspect]
     Active Substance: IBUPROFEN
     Indication: ARTHRITIS
     Dosage: 200 MG, 1X/DAY (A NIGHT)

REACTIONS (9)
  - Palpitations [Unknown]
  - Drug intolerance [Unknown]
  - Malaise [Unknown]
  - Pruritus [Unknown]
  - Eyelid irritation [Unknown]
  - Eyelid oedema [Unknown]
  - Nervousness [Unknown]
  - Migraine [Unknown]
  - Eyelids pruritus [Unknown]
